FAERS Safety Report 8356758-2 (Version None)
Quarter: 2012Q2

REPORT INFORMATION
  Report Type: 
  Country: None (occurrence: None)
  Receive Date: 20120514
  Receipt Date: 20120507
  Transmission Date: 20120825
  Serious: No
  Sender: FDA-Public Use
  Company Number: US-BAYER-2012-046137

PATIENT

DRUGS (2)
  1. NAPROXEN SODIUM [Suspect]
     Route: 048
  2. ADDERALL 5 [Suspect]

REACTIONS (1)
  - TREMOR [None]
